FAERS Safety Report 9184550 (Version 1)
Quarter: 2013Q1

REPORT INFORMATION
  Report Type: Spontaneous
  Country: HN (occurrence: HN)
  Receive Date: 20130322
  Receipt Date: 20130322
  Transmission Date: 20140127
  Serious: Yes (Death)
  Sender: FDA-Public Use
  Company Number: HN-PFIZER INC-2013091851

PATIENT
  Age: 87 Year
  Sex: Male

DRUGS (3)
  1. ECALTA [Suspect]
     Indication: CANDIDA INFECTION
     Dosage: 100 MG, SINGLE
     Route: 042
  2. FLUCONAZOLE [Concomitant]
     Indication: CANDIDA INFECTION
  3. CANCIDAS [Concomitant]
     Indication: CANDIDA INFECTION
     Dosage: 70 MG, SINGLE

REACTIONS (1)
  - Hypoxia [Fatal]
